FAERS Safety Report 6151186-2 (Version None)
Quarter: 2009Q2

REPORT INFORMATION
  Report Type: 
  Country: None (occurrence: None)
  Receive Date: 20090410
  Receipt Date: 20090330
  Transmission Date: 20091009
  Serious: Yes (Hospitalization)
  Sender: FDA-Public Use
  Company Number: JP-JNJFOC-20080105489

PATIENT
  Sex: Female

DRUGS (13)
  1. REMICADE [Suspect]
     Dosage: 6TH INFUSION
     Route: 042
  2. REMICADE [Suspect]
     Route: 042
  3. REMICADE [Suspect]
     Route: 042
  4. REMICADE [Suspect]
     Route: 042
  5. REMICADE [Suspect]
     Route: 042
  6. REMICADE [Suspect]
     Indication: RHEUMATOID ARTHRITIS
     Dosage: 5 INFUSIONS ON UNSPECIFIED DATES
     Route: 042
  7. RHEUMATREX [Suspect]
     Route: 048
  8. RHEUMATREX [Suspect]
     Indication: RHEUMATOID ARTHRITIS
     Route: 048
  9. ISONIAZID [Suspect]
  10. ISONIAZID [Suspect]
     Indication: PULMONARY TUBERCULOSIS
  11. FOLIAMIN [Concomitant]
     Indication: RHEUMATOID ARTHRITIS
     Route: 048
  12. NORVASC [Concomitant]
     Indication: HYPERTENSION
     Route: 048
  13. EUGLUCON [Concomitant]
     Indication: DIABETES MELLITUS
     Route: 048

REACTIONS (1)
  - PULMONARY TUBERCULOSIS [None]
